FAERS Safety Report 19139481 (Version 1)
Quarter: 2021Q2

REPORT INFORMATION
  Report Type: Spontaneous
  Country: US (occurrence: US)
  Receive Date: 20210415
  Receipt Date: 20210415
  Transmission Date: 20210717
  Serious: No
  Sender: FDA-Public Use
  Company Number: None

PATIENT
  Age: 47 Year
  Sex: Female

DRUGS (1)
  1. COSENTYX [Suspect]
     Active Substance: SECUKINUMAB
     Indication: ANKYLOSING SPONDYLITIS
     Dosage: INJECT 150MG (1 PEN) SUBCUTANEOUSLY AT DAY 28 (DOSE 5), THEN EVERY 4 WEEKS AS DIRECTED
     Route: 058
     Dates: start: 202103

REACTIONS (4)
  - COVID-19 immunisation [None]
  - Illness [None]
  - Vaccination complication [None]
  - Cough [None]
